FAERS Safety Report 12806396 (Version 2)
Quarter: 2016Q4

REPORT INFORMATION
  Report Type: Spontaneous
  Country: US (occurrence: US)
  Receive Date: 20161004
  Receipt Date: 20161012
  Transmission Date: 20170207
  Serious: No
  Sender: FDA-Public Use
  Company Number: US-UNICHEM LABORATORIES LIMITED-UCM201510-000853

PATIENT
  Sex: Female
  Weight: 80.92 kg

DRUGS (22)
  1. AMOXICILLIN. [Concomitant]
     Active Substance: AMOXICILLIN
     Route: 048
  2. FLUCONAZOLE. [Concomitant]
     Active Substance: FLUCONAZOLE
  3. SULFAMETHOXAZOLE/TRIMETHOPRIM [Concomitant]
     Active Substance: SULFAMETHOXAZOLE\TRIMETHOPRIM
  4. BACTROBAN [Concomitant]
     Active Substance: MUPIROCIN\MUPIROCIN CALCIUM
  5. HYDROCHLOROTHIAZIDE. [Suspect]
     Active Substance: HYDROCHLOROTHIAZIDE
  6. ERGOCALCIFEROL (VITAMIN D2) [Concomitant]
  7. GABAPENTIN. [Concomitant]
     Active Substance: GABAPENTIN
  8. CLONIDINE HCL [Concomitant]
     Active Substance: CLONIDINE HYDROCHLORIDE
  9. VESICARE [Concomitant]
     Active Substance: SOLIFENACIN SUCCINATE
  10. CIPROFLOXACIN. [Concomitant]
     Active Substance: CIPROFLOXACIN
     Route: 048
  11. CLONAZEPAM. [Concomitant]
     Active Substance: CLONAZEPAM
  12. HYDROCODONE/ACETAMINOPHEN [Concomitant]
     Active Substance: ACETAMINOPHEN\HYDROCODONE
  13. TRAMADOL. [Concomitant]
     Active Substance: TRAMADOL
  14. OMEPRAZOLE. [Concomitant]
     Active Substance: OMEPRAZOLE
  15. CHLORTHAIIDONE [Concomitant]
  16. POLYETHYLENE GLYCOL 3350. [Concomitant]
     Active Substance: POLYETHYLENE GLYCOL 3350
  17. METRONIDAZOLE. [Concomitant]
     Active Substance: METRONIDAZOLE
  18. AMLODIPINE BESYLATE AND BENAZEPRIL HYDROCHLORIDE [Concomitant]
     Active Substance: AMLODIPINE BESYLATE\BENAZEPRIL HYDROCHLORIDE
  19. PANTOPRAZOLE [Concomitant]
     Active Substance: PANTOPRAZOLE SODIUM
  20. AZITHROMYCIN ANHYDROUS. [Concomitant]
     Active Substance: AZITHROMYCIN ANHYDROUS
  21. MECLIZINE [Concomitant]
     Active Substance: MECLIZINE HYDROCHLORIDE
     Route: 048
  22. CLARITHROMYCIN. [Concomitant]
     Active Substance: CLARITHROMYCIN

REACTIONS (10)
  - Paraesthesia [Unknown]
  - Product use issue [Unknown]
  - Laceration [Unknown]
  - Hypoaesthesia [Unknown]
  - Treatment noncompliance [Unknown]
  - Anxiety [Unknown]
  - Dizziness [Unknown]
  - Injury [Unknown]
  - Pollakiuria [Unknown]
  - Myalgia [Unknown]
